FAERS Safety Report 5291870-6 (Version None)
Quarter: 2007Q2

REPORT INFORMATION
  Report Type: 
  Country: None (occurrence: None)
  Receive Date: 20070406
  Receipt Date: 20070406
  Transmission Date: 20071010
  Serious: Yes (Hospitalization)
  Sender: FDA-Public Use
  Company Number: None

PATIENT
  Age: 51 Year
  Sex: Male
  Weight: 103.8737 kg

DRUGS (3)
  1. FELODIPINE [Suspect]
     Dosage: 2.5 MG  DAILY  PO
     Route: 048
  2. TERAZOSIN HCL [Suspect]
     Dosage: 5 MG  QHS   PO
     Route: 048
  3. HYDROCHLOROTHIAZIDE 25MG TAB [Suspect]

REACTIONS (2)
  - BLOOD PRESSURE ORTHOSTATIC DECREASED [None]
  - DIZZINESS [None]
